FAERS Safety Report 15550512 (Version 22)
Quarter: 2021Q1

REPORT INFORMATION
  Report Type: Spontaneous
  Country: CA (occurrence: CA)
  Receive Date: 20181025
  Receipt Date: 20210309
  Transmission Date: 20210419
  Serious: Yes (Other)
  Sender: FDA-Public Use
  Company Number: CA-CELLTRION INC.-2018CA022680

PATIENT

DRUGS (32)
  1. INFLECTRA [Suspect]
     Active Substance: INFLIXIMAB-DYYB
     Dosage: 660 MG, EVERY 0, 2, 6 WEEKS, THEN EVERY 8 WEEKS (Q 0 WEEK DOSE)
     Route: 042
     Dates: start: 20180716, end: 20180716
  2. INFLECTRA [Suspect]
     Active Substance: INFLIXIMAB-DYYB
     Dosage: 660 MG, EVERY 0, 2 WEEKS, THEN EVERY 6 WEEKS
     Route: 042
     Dates: start: 20190920
  3. INFLECTRA [Suspect]
     Active Substance: INFLIXIMAB-DYYB
     Dosage: 660 MG, EVERY 0, 2 WEEKS, THEN EVERY 6 WEEKS
     Route: 042
     Dates: start: 20190517
  4. INFLECTRA [Suspect]
     Active Substance: INFLIXIMAB-DYYB
     Dosage: 700 MG, EVERY 6 WEEKS
     Route: 042
     Dates: start: 20200201
  5. INFLECTRA [Suspect]
     Active Substance: INFLIXIMAB-DYYB
     Dosage: 700 MG, EVERY 6 WEEKS
     Route: 042
     Dates: start: 20200201
  6. INFLECTRA [Suspect]
     Active Substance: INFLIXIMAB-DYYB
     Dosage: 660 MG, EVERY 0, 2 WEEKS, THEN EVERY 6 WEEKS
     Route: 042
     Dates: start: 20190405
  7. INFLECTRA [Suspect]
     Active Substance: INFLIXIMAB-DYYB
     Dosage: 700 MG, EVERY 6 WEEKS
     Route: 042
     Dates: start: 20200908
  8. INFLECTRA [Suspect]
     Active Substance: INFLIXIMAB-DYYB
     Dosage: 700 MG, EVERY 6 WEEKS
     Route: 042
     Dates: start: 20200908
  9. INFLECTRA [Suspect]
     Active Substance: INFLIXIMAB-DYYB
     Dosage: 660 MG, EVERY 0, 2, 6 WEEKS, THEN EVERY 8 WEEKS (Q 2 WEEK DOSE)
     Route: 042
     Dates: start: 20180731, end: 20180731
  10. INFLECTRA [Suspect]
     Active Substance: INFLIXIMAB-DYYB
     Dosage: 660 MG, EVERY 0, 2 WEEKS, THEN EVERY 6 WEEKS (Q 6 WEEKS (RE?INDUCTION)
     Route: 042
     Dates: start: 20190111, end: 20190111
  11. INFLECTRA [Suspect]
     Active Substance: INFLIXIMAB-DYYB
     Dosage: UNK
     Route: 042
     Dates: start: 20210227
  12. INFLECTRA [Suspect]
     Active Substance: INFLIXIMAB-DYYB
     Dosage: 660 MG, EVERY 0, 2, 6 WEEKS, THEN EVERY 8 WEEKS (Q 6 WEEK DOSE)
     Route: 042
     Dates: start: 20180827, end: 20180827
  13. INFLECTRA [Suspect]
     Active Substance: INFLIXIMAB-DYYB
     Dosage: 660 MG, EVERY 0, 2 WEEKS, THEN EVERY 6 WEEKS
     Route: 042
     Dates: start: 20181012, end: 20190929
  14. INFLECTRA [Suspect]
     Active Substance: INFLIXIMAB-DYYB
     Dosage: 660 MG, EVERY 0, 2 WEEKS, THEN EVERY 6 WEEKS (Q 2 WEEK (RE?INDUCTION)
     Route: 042
     Dates: start: 20181127, end: 20181127
  15. INFLECTRA [Suspect]
     Active Substance: INFLIXIMAB-DYYB
     Dosage: 660 MG, EVERY 0, 2 WEEKS, THEN EVERY 6 WEEKS
     Route: 042
     Dates: start: 20190813
  16. INFLECTRA [Suspect]
     Active Substance: INFLIXIMAB-DYYB
     Dosage: 700 MG, EVERY 6 WEEKS
     Route: 042
     Dates: start: 20200908
  17. INFLECTRA [Suspect]
     Active Substance: INFLIXIMAB-DYYB
     Indication: COLITIS ULCERATIVE
     Dosage: 660 MG, EVERY 0, 2, 6 WEEKS, THEN EVERY 8 WEEKS
     Route: 042
     Dates: start: 20180713
  18. INFLECTRA [Suspect]
     Active Substance: INFLIXIMAB-DYYB
     Dosage: 660 MG, EVERY 0, 2 WEEKS, THEN EVERY 6 WEEKS (Q 0 WEEKS DOSE (RE?INDUCTION)
     Route: 042
     Dates: start: 20181012, end: 20181012
  19. INFLECTRA [Suspect]
     Active Substance: INFLIXIMAB-DYYB
     Dosage: 660 MG, EVERY 0, 2 WEEKS, THEN EVERY 6 WEEKS
     Route: 042
     Dates: start: 20190222, end: 20190920
  20. FOLIC ACID. [Concomitant]
     Active Substance: FOLIC ACID
     Dosage: 5 MG, DAILY
  21. INFLECTRA [Suspect]
     Active Substance: INFLIXIMAB-DYYB
     Dosage: 700 MG, EVERY 6 WEEKS
     Route: 042
     Dates: start: 20201203
  22. INFLECTRA [Suspect]
     Active Substance: INFLIXIMAB-DYYB
     Dosage: 700 MG, EVERY 6 WEEKS
     Route: 042
     Dates: start: 20210116
  23. INFLECTRA [Suspect]
     Active Substance: INFLIXIMAB-DYYB
     Dosage: UNK
     Route: 042
     Dates: start: 20210227
  24. ASACOL [Concomitant]
     Active Substance: MESALAMINE
     Dosage: 2400 MG, DAILY
     Route: 048
     Dates: start: 201807
  25. INFLECTRA [Suspect]
     Active Substance: INFLIXIMAB-DYYB
     Dosage: 660 MG, EVERY 0, 2, 6 WEEKS, THEN EVERY 8 WEEKS
     Route: 042
     Dates: start: 20180716, end: 20180827
  26. INFLECTRA [Suspect]
     Active Substance: INFLIXIMAB-DYYB
     Dosage: 660 MG, EVERY 0, 2 WEEKS, THEN EVERY 6 WEEKS
     Route: 042
     Dates: start: 20190628
  27. INFLECTRA [Suspect]
     Active Substance: INFLIXIMAB-DYYB
     Dosage: 660 MG, EVERY 0, 2 WEEKS, THEN EVERY 6 WEEKS
     Route: 042
     Dates: start: 20190920
  28. INFLECTRA [Suspect]
     Active Substance: INFLIXIMAB-DYYB
     Dosage: 700 MG, EVERY 6 WEEKS
     Route: 042
     Dates: start: 20191108
  29. INFLECTRA [Suspect]
     Active Substance: INFLIXIMAB-DYYB
     Dosage: 700 MG, EVERY 6 WEEKS
     Route: 042
     Dates: start: 20191217
  30. INFLECTRA [Suspect]
     Active Substance: INFLIXIMAB-DYYB
     Dosage: 700 MG, EVERY 6 WEEKS
     Route: 042
     Dates: start: 20200908
  31. INFLECTRA [Suspect]
     Active Substance: INFLIXIMAB-DYYB
     Dosage: 700 MG, EVERY 6 WEEKS
     Route: 042
     Dates: start: 20201023
  32. METHOTREXATE. [Concomitant]
     Active Substance: METHOTREXATE
     Dosage: 12.5 MG, WEEKLY
     Route: 048
     Dates: start: 201808

REACTIONS (13)
  - Off label use [Unknown]
  - Weight decreased [Recovered/Resolved]
  - Intentional product use issue [Unknown]
  - Condition aggravated [Recovering/Resolving]
  - Mean cell haemoglobin increased [Unknown]
  - Off label use [Unknown]
  - Incorrect dose administered [Unknown]
  - Nasopharyngitis [Unknown]
  - Cough [Not Recovered/Not Resolved]
  - Red blood cell count decreased [Unknown]
  - Therapeutic response shortened [Unknown]
  - Respiratory tract congestion [Unknown]
  - Poor venous access [Unknown]

NARRATIVE: CASE EVENT DATE: 20180920
